FAERS Safety Report 5735422-X (Version None)
Quarter: 2008Q2

REPORT INFORMATION
  Report Type: 
  Country: None (occurrence: None)
  Receive Date: 20080508
  Receipt Date: 20080508
  Transmission Date: 20081010
  Serious: Yes (Other)
  Sender: FDA-Public Use
  Company Number: None

PATIENT
  Sex: Female
  Weight: 65.7716 kg

DRUGS (1)
  1. CREST PRO-HEALTH ORAL RINSE CREST [Suspect]
     Indication: DENTAL DISORDER PROPHYLAXIS
     Dosage: APPROX 30ML DAILY PO
     Route: 048
     Dates: start: 20080501, end: 20080505

REACTIONS (1)
  - AGEUSIA [None]
